FAERS Safety Report 7097558-3 (Version None)
Quarter: 2010Q4

REPORT INFORMATION
  Report Type: 
  Country: None (occurrence: None)
  Receive Date: 20101111
  Receipt Date: 20101006
  Transmission Date: 20110411
  Serious: Yes (Other)
  Sender: FDA-Public Use
  Company Number: US-BAXTER-2009BH015623

PATIENT
  Age: 56 Year
  Sex: Male
  Weight: 91 kg

DRUGS (25)
  1. HEPARIN SODIUM INJECTION [Suspect]
     Indication: CATHETERISATION CARDIAC
     Route: 058
     Dates: start: 20071008, end: 20071021
  2. HEPARIN SODIUM INJECTION [Suspect]
     Indication: VASCULAR GRAFT
     Route: 058
     Dates: start: 20071008, end: 20071021
  3. HEPARIN SODIUM INJECTION [Suspect]
     Indication: ANGIOPLASTY
     Route: 058
     Dates: start: 20071008, end: 20071021
  4. HEPARIN SODIUM INJECTION [Suspect]
     Route: 042
     Dates: start: 20071008, end: 20071021
  5. HEPARIN SODIUM INJECTION [Suspect]
     Route: 042
     Dates: start: 20071008, end: 20071021
  6. HEPARIN SODIUM INJECTION [Suspect]
     Route: 042
     Dates: start: 20071008, end: 20071021
  7. HEPARIN SODIUM INJECTION [Suspect]
     Route: 058
     Dates: start: 20071007, end: 20071021
  8. HEPARIN SODIUM INJECTION [Suspect]
     Route: 058
     Dates: start: 20071007, end: 20071021
  9. HEPARIN SODIUM INJECTION [Suspect]
     Route: 058
     Dates: start: 20071007, end: 20071021
  10. HEPARIN SODIUM INJECTION [Suspect]
     Route: 065
     Dates: start: 20071007, end: 20071007
  11. HEPARIN SODIUM INJECTION [Suspect]
     Route: 065
     Dates: start: 20071007, end: 20071007
  12. HEPARIN SODIUM INJECTION [Suspect]
     Route: 065
     Dates: start: 20071007, end: 20071007
  13. HEPARIN SODIUM INJECTION [Suspect]
     Route: 065
     Dates: start: 20071008, end: 20071008
  14. HEPARIN SODIUM INJECTION [Suspect]
     Route: 065
     Dates: start: 20071008, end: 20071008
  15. HEPARIN SODIUM INJECTION [Suspect]
     Route: 065
     Dates: start: 20071008, end: 20071008
  16. GLYBURIDE [Concomitant]
     Indication: PRODUCT USED FOR UNKNOWN INDICATION
     Route: 065
  17. GLIMEPIRIDE [Concomitant]
     Indication: PRODUCT USED FOR UNKNOWN INDICATION
     Route: 065
  18. CARVEDILOL [Concomitant]
     Indication: PRODUCT USED FOR UNKNOWN INDICATION
     Route: 065
  19. WARFARIN [Concomitant]
     Indication: PRODUCT USED FOR UNKNOWN INDICATION
     Route: 065
  20. CRESTOR [Concomitant]
     Indication: PRODUCT USED FOR UNKNOWN INDICATION
     Route: 065
  21. ALLOPURINOL SODIUM [Concomitant]
     Indication: PRODUCT USED FOR UNKNOWN INDICATION
     Route: 065
  22. ASPIRIN [Concomitant]
     Indication: PRODUCT USED FOR UNKNOWN INDICATION
     Route: 065
  23. ALTACE [Concomitant]
     Indication: PRODUCT USED FOR UNKNOWN INDICATION
     Route: 065
  24. COLACE [Concomitant]
     Indication: PRODUCT USED FOR UNKNOWN INDICATION
     Route: 065
  25. LOVENOX [Concomitant]
     Indication: PRODUCT USED FOR UNKNOWN INDICATION
     Route: 058

REACTIONS (3)
  - CEREBROVASCULAR ACCIDENT [None]
  - GAIT DISTURBANCE [None]
  - INFECTION [None]
